FAERS Safety Report 20818738 (Version 1)
Quarter: 2022Q2

REPORT INFORMATION
  Report Type: Spontaneous
  Country: US (occurrence: US)
  Receive Date: 20220512
  Receipt Date: 20220512
  Transmission Date: 20220721
  Serious: Yes (Hospitalization, Other)
  Sender: FDA-Public Use
  Company Number: US-PFIZER INC-202100991398

PATIENT
  Age: 38 Year
  Sex: Female
  Weight: 68 kg

DRUGS (2)
  1. MAGNESIUM SULFATE [Suspect]
     Active Substance: MAGNESIUM SULFATE
     Indication: Pre-eclampsia
     Dosage: 6 G, SINGLE (LOADING DOSE)
     Route: 040
     Dates: start: 20210507, end: 20210508
  2. MAGNESIUM SULFATE [Suspect]
     Active Substance: MAGNESIUM SULFATE
     Dosage: 2 G, PER HR CONTINUOUS INFUSION
     Route: 040
     Dates: start: 20210507, end: 20210508

REACTIONS (11)
  - Toxicity to various agents [Unknown]
  - Blood magnesium increased [Unknown]
  - Hypocalcaemia [Unknown]
  - Hyperparathyroidism secondary [Unknown]
  - Cerebrovascular accident [Unknown]
  - Slow speech [Recovered/Resolved]
  - Feeling abnormal [Recovered/Resolved]
  - Discomfort [Recovered/Resolved]
  - Aphasia [Recovered/Resolved]
  - Blood osmolarity decreased [Unknown]
  - Hyponatraemia [Unknown]

NARRATIVE: CASE EVENT DATE: 20210508
